FAERS Safety Report 10509144 (Version 1)
Quarter: 2014Q3

REPORT INFORMATION
  Report Type: Spontaneous
  Country: US (occurrence: None)
  Receive Date: 20140915
  Receipt Date: 20140915
  Transmission Date: 20150326
  Serious: Yes (Other)
  Sender: FDA-Public Use
  Company Number: 2014-US-000657

PATIENT
  Age: 43 Year
  Sex: Male
  Weight: 65.8 kg

DRUGS (4)
  1. NUVIGIL [Concomitant]
     Active Substance: ARMODAFINIL
  2. XYREM [Suspect]
     Active Substance: SODIUM OXYBATE
     Indication: SOMNOLENCE
     Route: 048
     Dates: start: 201109
  3. VITAMINS (VITAMINS) [Concomitant]
  4. XYREM [Suspect]
     Active Substance: SODIUM OXYBATE
     Indication: NARCOLEPSY
     Route: 048
     Dates: start: 201109

REACTIONS (8)
  - Hangover [None]
  - Gastritis erosive [None]
  - Abdominal pain upper [None]
  - Vomiting [None]
  - Diarrhoea [None]
  - Intentional product misuse [None]
  - Depression [None]
  - Somnolence [None]
